FAERS Safety Report 5801410-8 (Version None)
Quarter: 2008Q2

REPORT INFORMATION
  Report Type: 
  Country: None (occurrence: None)
  Receive Date: 20080626
  Receipt Date: 20070730
  Transmission Date: 20081010
  Serious: Yes (Other)
  Sender: FDA-Public Use
  Company Number: 509520

PATIENT
  Age: 75 Year
  Sex: Male

DRUGS (2)
  1. XELODA [Suspect]
     Indication: COLON CANCER STAGE III
     Dosage: 2000 MG 2 PER DAY ORAL
     Route: 048
  2. ANTIBIOTICS NOS (ANTIBIOTIC NOS) [Concomitant]

REACTIONS (2)
  - COLITIS ULCERATIVE [None]
  - PALMAR-PLANTAR ERYTHRODYSAESTHESIA SYNDROME [None]
